FAERS Safety Report 5339409-0 (Version None)
Quarter: 2007Q2

REPORT INFORMATION
  Report Type: 
  Country: None (occurrence: None)
  Receive Date: 20070322
  Receipt Date: 20060927
  Transmission Date: 20071010
  Serious: Yes (Other)
  Sender: FDA-Public Use
  Company Number: 200613401BCC

PATIENT
  Sex: Female
  Weight: 81.6475 kg

DRUGS (4)
  1. ALEVE [Suspect]
     Indication: BACK PAIN
     Dosage: 440 MG, TOTAL DAILY, ORAL
     Route: 048
  2. ZESTRIL [Concomitant]
  3. LASIX [Concomitant]
  4. THYROXIN [Concomitant]

REACTIONS (1)
  - RECTAL HAEMORRHAGE [None]
